FAERS Safety Report 19331003 (Version 1)
Quarter: 2021Q2

REPORT INFORMATION
  Report Type: Spontaneous
  Country: MY (occurrence: MY)
  Receive Date: 20210528
  Receipt Date: 20210528
  Transmission Date: 20210717
  Serious: Yes (Other)
  Sender: FDA-Public Use
  Company Number: MY-PFIZER INC-2021577138

PATIENT

DRUGS (1)
  1. VIZIMPRO [Suspect]
     Active Substance: DACOMITINIB
     Dosage: UNK

REACTIONS (1)
  - Acute kidney injury [Unknown]
